FAERS Safety Report 5323591-5 (Version None)
Quarter: 2007Q2

REPORT INFORMATION
  Report Type: 
  Country: None (occurrence: None)
  Receive Date: 20070509
  Receipt Date: 20070509
  Transmission Date: 20071010
  Serious: Yes (Hospitalization)
  Sender: FDA-Public Use
  Company Number: None

PATIENT
  Age: 80 Year
  Sex: Male
  Weight: 64.6 kg

DRUGS (7)
  1. CISPLATIN [Suspect]
     Indication: NASOPHARYNGEAL DISORDER
     Dosage: 180 MG/M2, IV
     Route: 042
     Dates: start: 20070416
  2. CETUXIMAB [Suspect]
     Dosage: 250 MG/M2, IV
     Route: 042
     Dates: start: 20070227
  3. NIFEDIPINE [Concomitant]
  4. LIPITOR [Concomitant]
  5. ARICEPT [Concomitant]
  6. COREG [Concomitant]
  7. PEPCID [Concomitant]

REACTIONS (2)
  - ANOREXIA [None]
  - DEHYDRATION [None]
